FAERS Safety Report 5471647-9 (Version None)
Quarter: 2007Q3

REPORT INFORMATION
  Report Type: 
  Country: None (occurrence: None)
  Receive Date: 20070928
  Receipt Date: 20070301
  Transmission Date: 20080115
  Serious: No
  Sender: FDA-Public Use
  Company Number: US-BRISTOL-MYERS SQUIBB COMPANY-13696620

PATIENT
  Sex: Male
  Weight: 132 kg

DRUGS (10)
  1. DEFINITY [Suspect]
     Indication: ECHOCARDIOGRAM
     Route: 042
  2. INSULIN [Concomitant]
  3. MORPHINE [Concomitant]
  4. WARFARIN [Concomitant]
  5. LASIX [Concomitant]
  6. METOPROLOL SUCCINATE [Concomitant]
  7. SIMVASTATIN [Concomitant]
  8. SPIRONOLACTONE [Concomitant]
  9. VALSARTAN [Concomitant]
  10. ANCEF [Concomitant]

REACTIONS (1)
  - BACK PAIN [None]
